FAERS Safety Report 11446123 (Version 1)
Quarter: 2015Q3

REPORT INFORMATION
  Report Type: Spontaneous
  Country: US (occurrence: US)
  Receive Date: 20150831
  Receipt Date: 20150831
  Transmission Date: 20151125
  Serious: Yes (Hospitalization)
  Sender: FDA-Public Use
  Company Number: US-ELI_LILLY_AND_COMPANY-US200810000079

PATIENT
  Age: 24 Year
  Sex: Female

DRUGS (1)
  1. CYMBALTA [Suspect]
     Active Substance: DULOXETINE HYDROCHLORIDE
     Indication: ANXIETY
     Dosage: 30 MG, UNK
     Dates: start: 200809, end: 20080928

REACTIONS (5)
  - Suicidal ideation [Not Recovered/Not Resolved]
  - Tachyphrenia [Unknown]
  - Personality change [Unknown]
  - Depression [Unknown]
  - Mental disorder [Unknown]

NARRATIVE: CASE EVENT DATE: 20080924
